FAERS Safety Report 9046271 (Version 1)
Quarter: 2013Q1

REPORT INFORMATION
  Report Type: Spontaneous
  Country: US (occurrence: None)
  Receive Date: 20130128
  Receipt Date: 20130128
  Transmission Date: 20140127
  Serious: Yes (Hospitalization)
  Sender: FDA-Public Use
  Company Number: None

PATIENT
  Age: 80 Year
  Sex: Male
  Weight: 85.6 kg

DRUGS (1)
  1. WARFARIN [Suspect]
     Indication: ATRIAL FIBRILLATION
     Dosage: OTHER
     Route: 048
     Dates: start: 20110525

REACTIONS (5)
  - Gastric haemorrhage [None]
  - Dizziness [None]
  - Rectal haemorrhage [None]
  - Diarrhoea [None]
  - Haemorrhoidal haemorrhage [None]
